FAERS Safety Report 24874434 (Version 1)
Quarter: 2025Q1

REPORT INFORMATION
  Report Type: Spontaneous
  Country: US (occurrence: None)
  Receive Date: 20250122
  Receipt Date: 20250122
  Transmission Date: 20250409
  Serious: Yes (Hospitalization)
  Sender: FDA-CTU
  Company Number: None

PATIENT
  Sex: Female

DRUGS (6)
  1. MYCOPHENOLATE MOFETIL [Suspect]
     Active Substance: MYCOPHENOLATE MOFETIL
     Indication: Systemic scleroderma
     Dosage: FREQUENCY : TWICE A DAY;?
     Route: 048
     Dates: start: 201612
  2. PREDNISONE [Concomitant]
     Active Substance: PREDNISONE
  3. CEFEROXIME [Concomitant]
  4. AZITHROMYCIN [Concomitant]
     Active Substance: AZITHROMYCIN
  5. ACTEMRA [Concomitant]
     Active Substance: TOCILIZUMAB
  6. PFEV [Concomitant]

REACTIONS (1)
  - Blood calcium increased [None]
